FAERS Safety Report 12613691 (Version 3)
Quarter: 2017Q1

REPORT INFORMATION
  Report Type: Spontaneous
  Country: US (occurrence: US)
  Receive Date: 20160802
  Receipt Date: 20170330
  Transmission Date: 20170428
  Serious: Yes (Death, Hospitalization)
  Sender: FDA-Public Use
  Company Number: US-ALEMBIC PHARMACUETICALS LIMITED-2016SCAL000581

PATIENT

DRUGS (3)
  1. DULOXETINE DR CAPSULE [Suspect]
     Active Substance: DULOXETINE HYDROCHLORIDE
     Indication: PRODUCT USED FOR UNKNOWN INDICATION
     Dosage: 60 MG, UNK; NO. OF SEPARATE DOSAGES: 1 - NO. OF UNITS PER INTERVAL: 1 - INTERVAL: DAY
  2. DIPHENHYDRAMINE. [Suspect]
     Active Substance: DIPHENHYDRAMINE
     Indication: PRODUCT USED FOR UNKNOWN INDICATION
     Dosage: UNK
  3. CYCLOBENZAPRINE [Suspect]
     Active Substance: CYCLOBENZAPRINE
     Indication: PRODUCT USED FOR UNKNOWN INDICATION
     Dosage: 10 MG, UNK; NO. OF SEPARATE DOSAGES: 3 - NO. OF UNITS PER INTERVAL: 1 - INTERVAL: DAY

REACTIONS (4)
  - Cardiac arrest [Fatal]
  - Dry mouth [Fatal]
  - Toxicity to various agents [Fatal]
  - Tachycardia [Fatal]
